FAERS Safety Report 18189200 (Version 1)
Quarter: 2020Q3

REPORT INFORMATION
  Report Type: Spontaneous
  Country: US (occurrence: US)
  Receive Date: 20200824
  Receipt Date: 20200824
  Transmission Date: 20201103
  Serious: No
  Sender: FDA-Public Use
  Company Number: US-PERRIGO-20US002036

PATIENT
  Sex: Male
  Weight: 97.51 kg

DRUGS (3)
  1. LYRICA [Concomitant]
     Active Substance: PREGABALIN
     Indication: SEIZURE
     Dosage: UNK
     Route: 065
  2. NICOTINE POLACRILEX [Suspect]
     Active Substance: NICOTINE
     Indication: TOBACCO USER
  3. NICOTINE POLACRILEX [Suspect]
     Active Substance: NICOTINE
     Indication: SMOKING CESSATION THERAPY
     Dosage: 4 MG, 17 TO 18 TIMES DAILY
     Route: 048
     Dates: start: 2018, end: 202001

REACTIONS (3)
  - Tooth erosion [Not Recovered/Not Resolved]
  - Off label use [Recovered/Resolved]
  - Wrong technique in product usage process [Recovered/Resolved]

NARRATIVE: CASE EVENT DATE: 2018
